FAERS Safety Report 7287165-1 (Version None)
Quarter: 2011Q1

REPORT INFORMATION
  Report Type: 
  Country: None (occurrence: None)
  Receive Date: 20110211
  Receipt Date: 20110127
  Transmission Date: 20110831
  Serious: Yes (Hospitalization, Other)
  Sender: FDA-Public Use
  Company Number: JP-ROCHE-757207

PATIENT
  Age: 55 Year
  Sex: Male

DRUGS (3)
  1. AVASTIN [Suspect]
     Indication: LUNG ADENOCARCINOMA
     Route: 041
     Dates: start: 20100519, end: 20100728
  2. PACLITAXEL [Concomitant]
     Indication: LUNG ADENOCARCINOMA
     Route: 041
  3. CARBOPLATIN [Concomitant]
     Indication: LUNG ADENOCARCINOMA
     Route: 041

REACTIONS (2)
  - MELAENA [None]
  - RECTAL ULCER [None]
